FAERS Safety Report 6227310-X (Version None)
Quarter: 2009Q2

REPORT INFORMATION
  Report Type: 
  Country: None (occurrence: None)
  Receive Date: 20090612
  Receipt Date: 20090605
  Transmission Date: 20091009
  Serious: Yes (Death, Hospitalization)
  Sender: FDA-Public Use
  Company Number: FR-ABBOTT-09P-056-0572773-00

PATIENT
  Sex: Male

DRUGS (5)
  1. ZECLAR [Suspect]
     Indication: ATYPICAL MYCOBACTERIAL INFECTION
     Route: 048
     Dates: start: 20080619, end: 20081101
  2. NOXAFIL [Suspect]
     Indication: FUNGAL INFECTION
     Route: 048
     Dates: start: 20080903
  3. MYAMBUTOL [Suspect]
     Indication: ATYPICAL MYCOBACTERIAL INFECTION
     Route: 048
     Dates: start: 20080619
  4. ANSATIPINE [Suspect]
     Indication: ATYPICAL MYCOBACTERIAL INFECTION
     Route: 048
     Dates: start: 20080619
  5. CORTICOIDS NOS [Concomitant]
     Indication: AUTOIMMUNE THROMBOCYTOPENIA
     Route: 048
     Dates: start: 20071101

REACTIONS (4)
  - INFECTION [None]
  - MULTI-ORGAN FAILURE [None]
  - NEUTROPENIA [None]
  - SEPTIC SHOCK [None]
